FAERS Safety Report 10334981 (Version 1)
Quarter: 2014Q3

REPORT INFORMATION
  Report Type: Spontaneous
  Country: US (occurrence: None)
  Receive Date: 20140721
  Receipt Date: 20140721
  Transmission Date: 20150326
  Serious: No
  Sender: FDA-Public Use
  Company Number: COM-002419

PATIENT
  Age: 18 Month
  Sex: Female
  Weight: 16.33 kg

DRUGS (1)
  1. COUGH RELIEF GRAPE [Suspect]
     Active Substance: DEXTROMETHORPHAN HYDROBROMIDE
     Indication: COUGH
     Dosage: T TEASPOON, ONCE, ORAL
     Route: 048
     Dates: start: 20140702

REACTIONS (7)
  - Pyrexia [None]
  - Liquid product physical issue [None]
  - Product tampering [None]
  - Fatigue [None]
  - Viral infection [None]
  - Decreased appetite [None]
  - Product odour abnormal [None]

NARRATIVE: CASE EVENT DATE: 20140702
